FAERS Safety Report 4472523-0 (Version None)
Quarter: 2004Q4

REPORT INFORMATION
  Report Type: 
  Country: None (occurrence: None)
  Receive Date: 20041007
  Receipt Date: 20040927
  Transmission Date: 20050328
  Serious: Yes (Hospitalization)
  Sender: FDA-Public Use
  Company Number: 140181USA

PATIENT
  Age: 73 Year
  Sex: Female
  Weight: 64.8644 kg

DRUGS (10)
  1. 5-FU [Suspect]
     Indication: COLON CANCER METASTATIC
  2. IRINOTECAN [Suspect]
     Indication: COLON CANCER METASTATIC
  3. LEUCOVORIN [Suspect]
     Indication: COLON CANCER METASTATIC
  4. AVASTIN [Suspect]
     Indication: COLON CANCER METASTATIC
  5. CELEBREX [Suspect]
     Dates: start: 20040824
  6. PHENERGAN [Concomitant]
  7. HYDROCHLOROTHIAZIDE [Concomitant]
  8. ZESTRIL [Concomitant]
  9. DILAUDID [Concomitant]
  10. IMODIUM [Concomitant]

REACTIONS (4)
  - DIARRHOEA [None]
  - FEBRILE NEUTROPENIA [None]
  - NAUSEA [None]
  - VOMITING [None]
